FAERS Safety Report 9766456 (Version 1)
Quarter: 2013Q4

REPORT INFORMATION
  Report Type: Spontaneous
  Country: US (occurrence: US)
  Receive Date: 20131217
  Receipt Date: 20131217
  Transmission Date: 20140711
  Serious: No
  Sender: FDA-Public Use
  Company Number: US-GLAXOSMITHKLINE-A1028537A

PATIENT
  Age: 66 Year
  Sex: Male

DRUGS (5)
  1. VOTRIENT [Suspect]
     Indication: RENAL CELL CARCINOMA
     Dosage: 800MG PER DAY
     Route: 048
     Dates: start: 20120801, end: 201306
  2. FLOMAX [Concomitant]
  3. BABY ASPIRIN [Concomitant]
  4. MULTIVITAMIN [Concomitant]
  5. BYSTOLIC [Concomitant]

REACTIONS (11)
  - Dysgeusia [Recovered/Resolved]
  - Ageusia [Unknown]
  - Dysgeusia [Unknown]
  - Diarrhoea [Unknown]
  - Tongue ulceration [Unknown]
  - Hair colour changes [Unknown]
  - Hair colour changes [Unknown]
  - Enteritis [Unknown]
  - Flatulence [Unknown]
  - Nausea [Unknown]
  - Adverse event [Unknown]
